FAERS Safety Report 18752973 (Version 1)
Quarter: 2021Q1

REPORT INFORMATION
  Report Type: Spontaneous
  Country: US (occurrence: US)
  Receive Date: 20210118
  Receipt Date: 20210118
  Transmission Date: 20210419
  Serious: Yes (Hospitalization, Other)
  Sender: FDA-Public Use
  Company Number: US-GLAXOSMITHKLINE-US2021GSK004251

PATIENT
  Age: 53 Year
  Sex: Female

DRUGS (2)
  1. ALBUTEROL. [Suspect]
     Active Substance: ALBUTEROL
     Indication: ASTHMA
     Dosage: UNK
     Route: 055
  2. ALBUTEROL. [Suspect]
     Active Substance: ALBUTEROL
     Indication: ASTHMA
     Dosage: UNK
     Route: 055

REACTIONS (9)
  - Hyperhidrosis [Unknown]
  - Troponin increased [Unknown]
  - Stress cardiomyopathy [Unknown]
  - Dyspnoea [Unknown]
  - Hypoxia [Unknown]
  - Asthma [Unknown]
  - Hypotension [Unknown]
  - Acute respiratory failure [Unknown]
  - Electrocardiogram ST segment elevation [Unknown]
